APPROVED DRUG PRODUCT: TYZINE
Active Ingredient: TETRAHYDROZOLINE HYDROCHLORIDE
Strength: 0.1%
Dosage Form/Route: SPRAY;NASAL
Application: A086576 | Product #003
Applicant: FOUGERA PHARMACEUTICALS INC
Approved: Approved Prior to Jan 1, 1982 | RLD: No | RS: Yes | Type: RX